FAERS Safety Report 10186207 (Version 1)
Quarter: 2014Q2

REPORT INFORMATION
  Report Type: Spontaneous
  Country: BR (occurrence: BR)
  Receive Date: 20140521
  Receipt Date: 20140521
  Transmission Date: 20141212
  Serious: Yes (Hospitalization)
  Sender: FDA-Public Use
  Company Number: BR-GLAXOSMITHKLINE-A1074079A

PATIENT
  Sex: Male
  Weight: 64 kg

DRUGS (5)
  1. SERETIDE [Suspect]
     Indication: ASTHMA
     Dosage: 1PUFF TWICE PER DAY
     Route: 055
     Dates: start: 201310
  2. BEROTEC [Concomitant]
  3. ATROVENT [Concomitant]
  4. SALINE [Concomitant]
  5. BUSONID [Concomitant]

REACTIONS (2)
  - Asthmatic crisis [Unknown]
  - Influenza [Unknown]
